FAERS Safety Report 14409290 (Version 1)
Quarter: 2018Q1

REPORT INFORMATION
  Report Type: Spontaneous
  Country: US (occurrence: US)
  Receive Date: 20180119
  Receipt Date: 20180119
  Transmission Date: 20180509
  Serious: Yes (Life-Threatening)
  Sender: FDA-Public Use
  Company Number: US-ASTRAZENECA-2018SE05831

PATIENT
  Sex: Male

DRUGS (2)
  1. MOVANTIK [Suspect]
     Active Substance: NALOXEGOL OXALATE
     Route: 048
  2. PROBIOTIC [Concomitant]
     Active Substance: PROBIOTICS NOS
     Route: 065

REACTIONS (9)
  - Asthenia [Unknown]
  - Malaise [Unknown]
  - Cardio-respiratory arrest [Unknown]
  - Blood glucose abnormal [Unknown]
  - Blood glucose increased [Unknown]
  - Accident at work [Unknown]
  - Pancreatic disorder [Unknown]
  - Pneumonia [Unknown]
  - Drug ineffective [Unknown]
